FAERS Safety Report 25369258 (Version 1)
Quarter: 2025Q2

REPORT INFORMATION
  Report Type: Spontaneous
  Country: US (occurrence: None)
  Receive Date: 20250527
  Receipt Date: 20250527
  Transmission Date: 20250716
  Serious: No
  Sender: FDA-CTU
  Company Number: None

PATIENT
  Age: 50 Year
  Sex: Male
  Weight: 81 kg

DRUGS (11)
  1. ZORYVE [Suspect]
     Active Substance: ROFLUMILAST
     Indication: Skin disorder
     Dosage: 1 APPLICATION DAILY TOPICAL
     Route: 061
  2. CARBAMAZEPINE [Concomitant]
     Active Substance: CARBAMAZEPINE
  3. OMEPRAZOLE [Concomitant]
     Active Substance: OMEPRAZOLE
  4. LOSARTAN [Concomitant]
     Active Substance: LOSARTAN
  5. NAPROXEN [Concomitant]
     Active Substance: NAPROXEN
  6. BACLOFEN [Concomitant]
     Active Substance: BACLOFEN
  7. GABAPENTIN [Concomitant]
     Active Substance: GABAPENTIN
  8. FLONASE [Concomitant]
     Active Substance: FLUTICASONE PROPIONATE
  9. BENADRYL [Concomitant]
     Active Substance: DIPHENHYDRAMINE HYDROCHLORIDE
  10. ALBUTEROL [Concomitant]
     Active Substance: ALBUTEROL
  11. XANAX [Concomitant]
     Active Substance: ALPRAZOLAM

REACTIONS (3)
  - Eye pain [None]
  - Burning sensation [None]
  - Eye irritation [None]

NARRATIVE: CASE EVENT DATE: 20250524
